FAERS Safety Report 18485563 (Version 1)
Quarter: 2020Q4

REPORT INFORMATION
  Report Type: Report from Study
  Country: US (occurrence: US)
  Receive Date: 20201110
  Receipt Date: 20201110
  Transmission Date: 20210114
  Serious: Yes (Hospitalization, Other)
  Sender: FDA-Public Use
  Company Number: US-BAYER-2020-236582

PATIENT
  Age: 63 Year
  Sex: Female

DRUGS (4)
  1. STIVARGA [Suspect]
     Active Substance: REGORAFENIB
     Indication: COLON CANCER
     Dosage: 160 MG, QD FOR 3 WEEKS ON FOLLOWED BY 1 WEEK OFF
     Route: 048
     Dates: end: 20201021
  2. AMLODIPINE BESILATE [Concomitant]
     Active Substance: AMLODIPINE BESYLATE
     Dosage: UNK
  3. TELMISARTAN. [Concomitant]
     Active Substance: TELMISARTAN
     Dosage: UNK
  4. OXYCODONE HYDROCHLORIDE. [Concomitant]
     Active Substance: OXYCODONE HYDROCHLORIDE
     Dosage: UNK

REACTIONS (9)
  - Weight decreased [Recovering/Resolving]
  - Rash [Recovering/Resolving]
  - Tongue ulceration [Recovering/Resolving]
  - Jaundice [Recovering/Resolving]
  - Stomatitis [Recovering/Resolving]
  - Drug-induced liver injury [None]
  - Decreased appetite [Recovering/Resolving]
  - Fatigue [Recovering/Resolving]
  - Ageusia [None]
